FAERS Safety Report 9007877 (Version 1)
Quarter: 2013Q1

REPORT INFORMATION
  Report Type: Spontaneous
  Country: US (occurrence: US)
  Receive Date: 20130111
  Receipt Date: 20130111
  Transmission Date: 20140127
  Serious: Yes (Other)
  Sender: FDA-Public Use
  Company Number: US-009507513-1201USA04233

PATIENT
  Age: 5 Year
  Sex: Female
  Weight: 20.41 kg

DRUGS (1)
  1. SINGULAIR [Suspect]
     Indication: HYPERSENSITIVITY
     Dosage: 1TABLET, QD
     Route: 048
     Dates: start: 20100414, end: 20100414

REACTIONS (9)
  - Crying [Recovering/Resolving]
  - Eye swelling [Recovering/Resolving]
  - Feeling abnormal [Recovering/Resolving]
  - Ocular hyperaemia [Recovering/Resolving]
  - Pruritus [Recovering/Resolving]
  - Rhinorrhoea [Recovering/Resolving]
  - Sneezing [Recovering/Resolving]
  - Urticaria [Recovering/Resolving]
  - Abnormal behaviour [Recovering/Resolving]
